FAERS Safety Report 7623986-0 (Version None)
Quarter: 2011Q3

REPORT INFORMATION
  Report Type: 
  Country: None (occurrence: None)
  Receive Date: 20110720
  Receipt Date: 20110615
  Transmission Date: 20111222
  Serious: No
  Sender: FDA-Public Use
  Company Number: US-BRISTOL-MYERS SQUIBB COMPANY-15835218

PATIENT
  Age: 51 Year
  Sex: Female

DRUGS (12)
  1. YERVOY [Suspect]
  2. GLIPIZIDE [Concomitant]
  3. ADVAIR DISKUS 100/50 [Concomitant]
  4. METFORMIN HCL [Concomitant]
  5. CLARINEX [Concomitant]
     Dosage: CLARINEX D
  6. HYDROCORTISONE CREAM [Concomitant]
  7. SYNTHROID [Concomitant]
  8. PANTOPRAZOLE SODIUM [Concomitant]
  9. MULTI-VITAMIN [Concomitant]
  10. WELLBUTRIN [Concomitant]
  11. LEVEMIR [Concomitant]
  12. NASACORT AQ [Concomitant]

REACTIONS (1)
  - RASH [None]
